FAERS Safety Report 24652903 (Version 2)
Quarter: 2024Q4

REPORT INFORMATION
  Report Type: Spontaneous
  Country: DE (occurrence: DE)
  Receive Date: 20241122
  Receipt Date: 20241202
  Transmission Date: 20250115
  Serious: Yes (Other)
  Sender: HIKMA
  Company Number: None

PATIENT
  Age: 72 Year
  Sex: Female
  Weight: 56 kg

DRUGS (3)
  1. CEFTRIAXONE [Suspect]
     Active Substance: CEFTRIAXONE
     Indication: Diverticulitis
     Dosage: 3 DOSAGE FORM, QD
     Route: 042
     Dates: start: 20241018, end: 20241020
  2. METRONIDAZOLE SODIUM [Suspect]
     Active Substance: METRONIDAZOLE SODIUM
     Indication: Diverticulitis
     Dosage: 3 DOSAGE FORM, QD
     Route: 042
     Dates: start: 20241018, end: 20241020
  3. IRENAT TROPFEN [Concomitant]
     Indication: Contrast media reaction
     Dosage: 1 DOSAGE FORM, Q8H
     Route: 065

REACTIONS (5)
  - Nausea [Not Recovered/Not Resolved]
  - Neuropathy peripheral [Not Recovered/Not Resolved]
  - Retching [Not Recovered/Not Resolved]
  - Pyrexia [Unknown]
  - Abdominal pain upper [Unknown]

NARRATIVE: CASE EVENT DATE: 20241018
